FAERS Safety Report 16429775 (Version 1)
Quarter: 2019Q2

REPORT INFORMATION
  Report Type: Spontaneous
  Country: PT (occurrence: PT)
  Receive Date: 20190614
  Receipt Date: 20190614
  Transmission Date: 20190711
  Serious: Yes (Hospitalization)
  Sender: FDA-Public Use
  Company Number: PT-ACCORD-132926

PATIENT
  Age: 73 Year
  Sex: Female

DRUGS (1)
  1. OLMESARTAN/OLMESARTAN MEDOXOMIL [Suspect]
     Active Substance: OLMESARTAN MEDOXOMIL
     Indication: HYPERTENSION
     Route: 065

REACTIONS (3)
  - Sprue-like enteropathy [Recovered/Resolved]
  - Acidosis [Unknown]
  - Renal injury [Unknown]
